FAERS Safety Report 8437771-3 (Version None)
Quarter: 2012Q2

REPORT INFORMATION
  Report Type: 
  Country: None (occurrence: None)
  Receive Date: 20120614
  Receipt Date: 20120405
  Transmission Date: 20120825
  Serious: No
  Sender: FDA-Public Use
  Company Number: US-AMGEN-USASP2012016115

PATIENT
  Age: 83 Year
  Sex: Female

DRUGS (3)
  1. TRAMADOL HCL [Concomitant]
  2. CELEBREX [Concomitant]
  3. PROLIA [Suspect]
     Indication: OSTEOPOROSIS POSTMENOPAUSAL
     Dosage: UNK
     Dates: start: 20110101

REACTIONS (2)
  - INSOMNIA [None]
  - MYALGIA [None]
